FAERS Safety Report 9525664 (Version 2)
Quarter: 2013Q3

REPORT INFORMATION
  Report Type: Spontaneous
  Country: IT (occurrence: IT)
  Receive Date: 20130916
  Receipt Date: 20130918
  Transmission Date: 20140515
  Serious: Yes (Other)
  Sender: FDA-Public Use
  Company Number: IT-009507513-1309ITA005458

PATIENT
  Age: 30 Year
  Sex: Female

DRUGS (2)
  1. EMEND [Suspect]
     Indication: VOMITING
     Dosage: 125 MG 1 CAPSULE / 80 MG TWO CAPSULES, DAILY
     Route: 048
     Dates: start: 20130705, end: 20130705
  2. PANTOPRAZOLE [Concomitant]
     Dosage: 40 MG, UNK
     Route: 042

REACTIONS (2)
  - Sensation of pressure [Recovered/Resolved]
  - Urticaria [Recovered/Resolved]
